FAERS Safety Report 4701159-9 (Version None)
Quarter: 2005Q2

REPORT INFORMATION
  Report Type: 
  Country: None (occurrence: None)
  Receive Date: 20050628
  Receipt Date: 20050620
  Transmission Date: 20051028
  Serious: Yes (Death)
  Sender: FDA-Public Use
  Company Number: FR-GLAXOSMITHKLINE-B0385407A

PATIENT
  Age: 83 Year
  Sex: Male

DRUGS (5)
  1. AUGMENTIN [Suspect]
     Dosage: 3G PER DAY
     Route: 048
     Dates: start: 20030704, end: 20030716
  2. FLAGYL [Suspect]
     Route: 042
     Dates: start: 20030704, end: 20030717
  3. ROCEPHIN [Suspect]
     Dosage: 1G PER DAY
     Route: 042
     Dates: start: 20030704, end: 20030716
  4. OFLOCET [Suspect]
     Dosage: 200MG PER DAY
     Route: 042
     Dates: start: 20030704, end: 20030716
  5. GLICLAZIDE [Concomitant]
     Route: 065

REACTIONS (15)
  - ACIDOSIS [None]
  - ANURIA [None]
  - BLOOD CREATINE INCREASED [None]
  - CLOSTRIDIUM COLITIS [None]
  - DIARRHOEA [None]
  - HAEMOGLOBIN DECREASED [None]
  - HYPERKALAEMIA [None]
  - HYPOTENSION [None]
  - MELAENA [None]
  - OBSTRUCTION [None]
  - PYREXIA [None]
  - RENAL FAILURE [None]
  - SEPTIC SHOCK [None]
  - SHOCK HAEMORRHAGIC [None]
  - SMALL INTESTINAL HAEMORRHAGE [None]
